FAERS Safety Report 15537918 (Version 1)
Quarter: 2018Q4

REPORT INFORMATION
  Report Type: Spontaneous
  Country: US (occurrence: US)
  Receive Date: 20181022
  Receipt Date: 20181022
  Transmission Date: 20190205
  Serious: Yes (Other)
  Sender: FDA-Public Use
  Company Number: US-SA-2017SA261741

PATIENT
  Age: 53 Year
  Sex: Female
  Weight: 107 kg

DRUGS (11)
  1. NEOSAR [Concomitant]
     Active Substance: CYCLOPHOSPHAMIDE
     Dosage: UNK
  2. LYRICA [Concomitant]
     Active Substance: PREGABALIN
  3. VICTOZA [Concomitant]
     Active Substance: LIRAGLUTIDE
  4. ADRIAMYCIN [Concomitant]
     Active Substance: DOXORUBICIN HYDROCHLORIDE
     Dosage: UNK
  5. ALLOPURINOL. [Concomitant]
     Active Substance: ALLOPURINOL
  6. HYDROXYCHLOROQUINE [Concomitant]
     Active Substance: HYDROXYCHLOROQUINE
  7. TAXOTERE [Suspect]
     Active Substance: DOCETAXEL
     Dosage: 220 MG, Q3W
     Route: 042
     Dates: start: 20041208, end: 20041208
  8. LISINOPRIL. [Concomitant]
     Active Substance: LISINOPRIL
  9. TAXOTERE [Suspect]
     Active Substance: DOCETAXEL
     Indication: BREAST CANCER FEMALE
     Dosage: 220 MG, Q3W
     Route: 042
     Dates: start: 20041006, end: 20041006
  10. ARIMIDEX [Concomitant]
     Active Substance: ANASTROZOLE
  11. ATORVASTATIN [Concomitant]
     Active Substance: ATORVASTATIN

REACTIONS (2)
  - Alopecia [Recovering/Resolving]
  - Psychological trauma [Unknown]

NARRATIVE: CASE EVENT DATE: 20050608
